FAERS Safety Report 9896589 (Version 1)
Quarter: 2014Q1

REPORT INFORMATION
  Report Type: Spontaneous
  Country: US (occurrence: US)
  Receive Date: 20140213
  Receipt Date: 20140213
  Transmission Date: 20141002
  Serious: No
  Sender: FDA-Public Use
  Company Number: US-BRISTOL-MYERS SQUIBB COMPANY-19132679

PATIENT
  Age: 61 Year
  Sex: Male
  Weight: 78.91 kg

DRUGS (6)
  1. ABATACEPT SUBQ INJECTION 125MG/ML [Suspect]
     Indication: RHEUMATOID ARTHRITIS
     Dosage: 1DF=125MG/ML.
     Route: 058
  2. VITAMIN C [Concomitant]
     Dosage: CAPS.
  3. VITAMIN B COMPLEX [Concomitant]
     Dosage: TABS
  4. PREDNISONE [Concomitant]
     Dosage: TABS.
  5. METHOTREXATE TABS [Concomitant]
     Dosage: TABS.
  6. FOLIC ACID [Concomitant]
     Dosage: TABS.

REACTIONS (2)
  - Nasopharyngitis [Unknown]
  - Upper respiratory tract infection [Unknown]
